FAERS Safety Report 8671722 (Version 4)
Quarter: 2020Q3

REPORT INFORMATION
  Report Type: Report from Study
  Country: BR (occurrence: BR)
  Receive Date: 20120718
  Receipt Date: 20130124
  Transmission Date: 20201104
  Serious: Yes (Hospitalization, Other)
  Sender: FDA-Public Use
  Company Number: BR-ROCHE-724757

PATIENT
  Age: 52 Year
  Sex: Female
  Weight: 58 kg

DRUGS (17)
  1. TOCILIZUMAB. [Suspect]
     Active Substance: TOCILIZUMAB
     Route: 042
  2. TOCILIZUMAB. [Suspect]
     Active Substance: TOCILIZUMAB
     Indication: RHEUMATOID ARTHRITIS
     Route: 042
     Dates: start: 20090601, end: 20120201
  3. IBANDRONIC ACID. [Suspect]
     Active Substance: IBANDRONIC ACID
     Indication: OSTEOPOROSIS
     Route: 065
  4. RITUXIMAB. [Suspect]
     Active Substance: RITUXIMAB
     Route: 042
     Dates: end: 20100404
  5. ENDOFOLIN [Concomitant]
     Active Substance: FOLIC ACID
  6. ZOVIRAX [Concomitant]
     Active Substance: ACYCLOVIR
  7. METHOTREXATE. [Concomitant]
     Active Substance: METHOTREXATE
     Route: 042
  8. NEBACETIN [Suspect]
     Active Substance: BACITRACIN ZINC\NEOMYCIN SULFATE
     Indication: SKIN LACERATION
     Route: 065
  9. CALTRATE WITH VITAMIN D [Concomitant]
     Active Substance: CALCIUM CARBONATE\CHOLECALCIFEROL
  10. CENTRUM [Concomitant]
     Active Substance: VITAMINS
  11. VOLTAREN [Concomitant]
     Active Substance: DICLOFENAC SODIUM
     Route: 065
  12. CALCIUM [Concomitant]
     Active Substance: CALCIUM
  13. TOCILIZUMAB. [Suspect]
     Active Substance: TOCILIZUMAB
     Route: 042
  14. RITUXIMAB. [Suspect]
     Active Substance: RITUXIMAB
     Indication: RHEUMATOID ARTHRITIS
     Dosage: DOSE: 1000 MG/ML, FORTNIGHTLY IN EACH SEMESTER
     Route: 042
     Dates: start: 20101103, end: 20101118
  15. TOCILIZUMAB. [Suspect]
     Active Substance: TOCILIZUMAB
     Route: 042
  16. TOCILIZUMAB. [Suspect]
     Active Substance: TOCILIZUMAB
     Route: 042
  17. ARAVA [Concomitant]
     Active Substance: LEFLUNOMIDE
     Route: 065

REACTIONS (22)
  - Rheumatoid arthritis [Not Recovered/Not Resolved]
  - Gastrooesophageal reflux disease [Unknown]
  - Arthralgia [Unknown]
  - Leukocytosis [Not Recovered/Not Resolved]
  - Nervousness [Not Recovered/Not Resolved]
  - Herpes virus infection [Not Recovered/Not Resolved]
  - Vaginal haemorrhage [Unknown]
  - Fall [Recovered/Resolved]
  - Pain [Unknown]
  - Immunodeficiency [Unknown]
  - Urinary incontinence [Unknown]
  - Drug ineffective [Unknown]
  - Mental disorder [Unknown]
  - Depressed mood [Unknown]
  - Liver disorder [Not Recovered/Not Resolved]
  - Gait disturbance [Not Recovered/Not Resolved]
  - Pruritus [Not Recovered/Not Resolved]
  - Unevaluable event [Unknown]
  - Acne [Unknown]
  - Nasal necrosis [Recovered/Resolved]
  - Osteoporosis [Not Recovered/Not Resolved]
  - Neoplasm malignant [Unknown]

NARRATIVE: CASE EVENT DATE: 2010
